FAERS Safety Report 4790791-2 (Version None)
Quarter: 2005Q4

REPORT INFORMATION
  Report Type: 
  Country: None (occurrence: None)
  Receive Date: 20051006
  Receipt Date: 20041213
  Transmission Date: 20060501
  Serious: Yes (Hospitalization)
  Sender: FDA-Public Use
  Company Number: US-MERCK-0412USA01594

PATIENT
  Age: 75 Year
  Sex: Female

DRUGS (11)
  1. VYTORIN [Suspect]
     Indication: HYPERCHOLESTEROLAEMIA
     Route: 048
     Dates: start: 20041001, end: 20040101
  2. VYTORIN [Suspect]
     Route: 048
     Dates: start: 20040101, end: 20041129
  3. SYNTHROID [Concomitant]
     Route: 048
  4. PRINIVIL [Concomitant]
     Indication: CORONARY ARTERY DISEASE
     Route: 048
  5. PERSANTINE [Concomitant]
     Route: 048
  6. LOPRESSOR [Concomitant]
     Indication: HYPERTENSION
     Route: 048
  7. XANAX [Concomitant]
     Indication: ANXIETY
     Route: 048
  8. LOTREL [Concomitant]
     Route: 048
  9. PERCOCET [Concomitant]
     Route: 048
  10. MOBIC [Concomitant]
     Route: 048
  11. CELEXA [Concomitant]
     Route: 048

REACTIONS (11)
  - ABNORMAL FAECES [None]
  - ANOREXIA [None]
  - DIARRHOEA [None]
  - FLUID RETENTION [None]
  - GASTROINTESTINAL DISORDER [None]
  - HEPATIC ENZYME INCREASED [None]
  - LOW DENSITY LIPOPROTEIN INCREASED [None]
  - NAUSEA [None]
  - NEOPLASM MALIGNANT [None]
  - PYREXIA [None]
  - VOMITING [None]
